FAERS Safety Report 26079470 (Version 1)
Quarter: 2025Q4

REPORT INFORMATION
  Report Type: Spontaneous
  Country: US (occurrence: US)
  Receive Date: 20251123
  Receipt Date: 20251123
  Transmission Date: 20260117
  Serious: No
  Sender: GALPHARM INTERNATIONAL
  Company Number: US-PERRIGO-25US012061

PATIENT
  Sex: Female

DRUGS (1)
  1. OPILL [Suspect]
     Active Substance: NORGESTREL
     Indication: Contraception
     Dosage: 1 DOSAGE FORM, QD
     Route: 048

REACTIONS (6)
  - Acne [Unknown]
  - Breast pain [Unknown]
  - Irritability [Unknown]
  - Heavy menstrual bleeding [Unknown]
  - Abdominal pain [Unknown]
  - Headache [Unknown]
